FAERS Safety Report 18711889 (Version 2)
Quarter: 2021Q1

REPORT INFORMATION
  Report Type: Spontaneous
  Country: US (occurrence: US)
  Receive Date: 20210107
  Receipt Date: 20210113
  Transmission Date: 20210419
  Serious: Yes (Death, Hospitalization, Disabling, Other)
  Sender: FDA-Public Use
  Company Number: US-PFIZER INC-2021005148

PATIENT
  Age: 70 Year
  Sex: Female

DRUGS (6)
  1. DIGOXIN. [Suspect]
     Active Substance: DIGOXIN
     Dosage: UNK (INGST)
     Route: 048
     Dates: start: 2019
  2. OMEPRAZOLE. [Suspect]
     Active Substance: OMEPRAZOLE
     Dosage: UNK (INGST)
     Route: 048
     Dates: start: 2019
  3. GABAPENTIN. [Suspect]
     Active Substance: GABAPENTIN
     Dosage: UNK (INGST)
     Route: 048
     Dates: start: 2019
  4. AMIODARONE [Suspect]
     Active Substance: AMIODARONE
     Dosage: UNK (INGST)
     Route: 048
     Dates: start: 2019
  5. APIXABAN [Suspect]
     Active Substance: APIXABAN
     Dosage: UNK (INGST)
     Route: 048
     Dates: start: 2019
  6. MELOXICAM. [Suspect]
     Active Substance: MELOXICAM
     Dosage: UNK (INGST)
     Route: 048
     Dates: start: 2019

REACTIONS (1)
  - Completed suicide [Fatal]

NARRATIVE: CASE EVENT DATE: 2019
